FAERS Safety Report 12171476 (Version 1)
Quarter: 2016Q1

REPORT INFORMATION
  Report Type: Spontaneous
  Country: US (occurrence: US)
  Receive Date: 20160311
  Receipt Date: 20160311
  Transmission Date: 20160526
  Serious: Yes (Other)
  Sender: FDA-Public Use
  Company Number: CHPA2016US002905

PATIENT

DRUGS (1)
  1. THERAFLU NOS [Suspect]
     Active Substance: ACETAMINOPHEN AND OR DEXTROMETHORPHAN AND OR DIPHENHYDRAMINE AND OR GUAIFENESIN AND OR PHENYLEPHRINE AND OR PSEUDOEPHEDRINE
     Indication: INFLUENZA
     Route: 065

REACTIONS (5)
  - Pharyngeal oedema [Recovered/Resolved]
  - Rash [Recovered/Resolved]
  - Skin swelling [Recovered/Resolved]
  - Hypersensitivity [Recovered/Resolved]
  - Pruritus [Recovered/Resolved]
